FAERS Safety Report 4769863-4 (Version None)
Quarter: 2005Q3

REPORT INFORMATION
  Report Type: 
  Country: None (occurrence: None)
  Receive Date: 20050912
  Receipt Date: 20050711
  Transmission Date: 20060218
  Serious: No
  Sender: FDA-Public Use
  Company Number: 2005-01500

PATIENT
  Age: 55 Year
  Sex: Female
  Weight: 77.7 kg

DRUGS (2)
  1. VELCADE [Suspect]
     Indication: MULTIPLE MYELOMA
     Dates: start: 20040801
  2. PAXIL [Concomitant]

REACTIONS (1)
  - HERPES ZOSTER [None]
